FAERS Safety Report 14458426 (Version 2)
Quarter: 2018Q2

REPORT INFORMATION
  Report Type: Spontaneous
  Country: RU (occurrence: RU)
  Receive Date: 20180130
  Receipt Date: 20180515
  Transmission Date: 20180711
  Serious: Yes (Death)
  Sender: FDA-Public Use
  Company Number: RU-009507513-1801RUS013207

PATIENT
  Age: 35 Year
  Sex: Male

DRUGS (1)
  1. TEDIZOLID PHOSPHATE. [Suspect]
     Active Substance: TEDIZOLID PHOSPHATE
     Indication: ENTEROCOCCAL INFECTION
     Dosage: 200 MG, UNK
     Route: 042

REACTIONS (3)
  - Incorrect drug administration duration [Unknown]
  - Product prescribing issue [Unknown]
  - Multiple organ dysfunction syndrome [Fatal]
